FAERS Safety Report 23475053 (Version 1)
Quarter: 2024Q1

REPORT INFORMATION
  Report Type: Report from Study
  Country: US (occurrence: US)
  Receive Date: 20240204
  Receipt Date: 20240204
  Transmission Date: 20240410
  Serious: Yes (Other)
  Sender: FDA-Public Use
  Company Number: US-EXELIXIS-CABO-23069573

PATIENT
  Age: 54 Year
  Sex: Female

DRUGS (23)
  1. CABOMETYX [Suspect]
     Active Substance: CABOZANTINIB S-MALATE
     Indication: Renal cell carcinoma stage IV
     Dosage: 60 MG
     Dates: start: 2021, end: 20230428
  2. CABOMETYX [Suspect]
     Active Substance: CABOZANTINIB S-MALATE
     Dosage: 30 MG, QD (CUTTING 60 MG IN HALF)
  3. CABOMETYX [Suspect]
     Active Substance: CABOZANTINIB S-MALATE
     Dosage: 20 MG, QD
     Dates: start: 20230722
  4. CALCIUM\VITAMIN D [Concomitant]
     Active Substance: CALCIUM\VITAMIN D
  5. PILOCARPINE [Concomitant]
     Active Substance: PILOCARPINE
  6. POTASSIUM [Concomitant]
     Active Substance: POTASSIUM
  7. Turkey tail [Concomitant]
     Indication: Liver disorder
  8. Turkey tail [Concomitant]
     Indication: Immune system disorder
  9. QUINOL [Concomitant]
  10. Ginger and turmeric [Concomitant]
  11. OMEPRAZOLE [Concomitant]
     Active Substance: OMEPRAZOLE
  12. PREDNISONE [Concomitant]
     Active Substance: PREDNISONE
  13. CLONAZEPAM [Concomitant]
     Active Substance: CLONAZEPAM
  14. FOLIC ACID [Concomitant]
     Active Substance: FOLIC ACID
  15. TOPAMAX [Concomitant]
     Active Substance: TOPIRAMATE
  16. BUPROPION [Concomitant]
     Active Substance: BUPROPION
  17. CLARITIN [Concomitant]
     Active Substance: LORATADINE
  18. DOCUSATE [Concomitant]
     Active Substance: DOCUSATE
  19. ESCITALOPRAM [Concomitant]
     Active Substance: ESCITALOPRAM OXALATE
  20. LEVOTHYROXINE [Concomitant]
     Active Substance: LEVOTHYROXINE\LEVOTHYROXINE SODIUM
  21. ABILIFY [Concomitant]
     Active Substance: ARIPIPRAZOLE
  22. WELLBUTRIN [Concomitant]
     Active Substance: BUPROPION HYDROCHLORIDE
  23. VITAMIN B12 [Concomitant]
     Active Substance: CYANOCOBALAMIN

REACTIONS (16)
  - Weight decreased [Recovered/Resolved]
  - Malignant neoplasm progression [Unknown]
  - Blood potassium decreased [Recovering/Resolving]
  - Diarrhoea [Unknown]
  - Nausea [Recovered/Resolved]
  - Dry mouth [Unknown]
  - Vomiting [Recovered/Resolved]
  - Asthenia [Unknown]
  - Fatigue [Not Recovered/Not Resolved]
  - Gingival recession [Unknown]
  - Feeding disorder [Unknown]
  - Gait inability [Unknown]
  - Dry eye [Unknown]
  - Blood pressure decreased [Recovering/Resolving]
  - Product prescribing issue [Unknown]
  - Wrong technique in product usage process [Unknown]

NARRATIVE: CASE EVENT DATE: 20231006
